FAERS Safety Report 4662706-9 (Version None)
Quarter: 2005Q2

REPORT INFORMATION
  Report Type: 
  Country: None (occurrence: None)
  Receive Date: 20050516
  Receipt Date: 20050511
  Transmission Date: 20051028
  Serious: Yes (Other)
  Sender: FDA-Public Use
  Company Number: CA-GLAXOSMITHKLINE-A0558424A

PATIENT
  Age: 39 Year
  Sex: Male

DRUGS (4)
  1. COMBIVIR [Suspect]
     Indication: DRUG USE FOR UNKNOWN INDICATION
     Route: 048
  2. DIVALPROEX SODIUM [Suspect]
     Indication: DRUG USE FOR UNKNOWN INDICATION
     Dosage: 500MG TWICE PER DAY
     Route: 048
  3. ADVAIR DISKUS 100/50 [Concomitant]
  4. ADVIL [Concomitant]
     Route: 065

REACTIONS (13)
  - ANAEMIA MACROCYTIC [None]
  - ANGINA PECTORIS [None]
  - ASTHENIA [None]
  - BACK PAIN [None]
  - DYSPNOEA [None]
  - LEUKOPENIA [None]
  - NECK PAIN [None]
  - PAIN IN EXTREMITY [None]
  - PALLOR [None]
  - SOMNOLENCE [None]
  - SYNCOPE [None]
  - TINNITUS [None]
  - WEIGHT DECREASED [None]
